FAERS Safety Report 14601633 (Version 6)
Quarter: 2019Q1

REPORT INFORMATION
  Report Type: Spontaneous
  Country: IN (occurrence: IN)
  Receive Date: 20180306
  Receipt Date: 20190115
  Transmission Date: 20190417
  Serious: Yes (Death, Other)
  Sender: FDA-Public Use
  Company Number: IN-CIPLA LTD.-2014IN01075

PATIENT

DRUGS (12)
  1. ZOLEDRONIC ACID [Suspect]
     Active Substance: ZOLEDRONIC ACID
     Indication: ARTHRALGIA
     Dosage: 5MG/100 ML, I.V. INFUSION
     Route: 042
     Dates: start: 20140610
  2. PIDIMOL [Concomitant]
     Dosage: UNK UNK, QD
     Route: 042
  3. MEXT [Concomitant]
     Indication: ARTHRALGIA
     Dosage: UNK
     Route: 065
  4. INFLAHEAL [Concomitant]
     Dosage: UNK, BID
     Route: 065
  5. RABANGG [Concomitant]
     Dosage: UNK, QD
     Route: 065
  6. STEROIDS [Concomitant]
     Active Substance: UNSPECIFIED INGREDIENT
     Dosage: UNKNOWN
     Route: 065
  7. KIT HCQS [Concomitant]
     Dosage: UNKNOWN
     Route: 065
  8. KATADOL [Concomitant]
     Dosage: UNKNOWN
     Route: 065
  9. LANOL ER [Concomitant]
     Dosage: UNKNOWN
     Route: 065
  10. PAN 40 [Concomitant]
     Dosage: UNK UNK, QD
     Route: 042
  11. AUGMENTIN [Concomitant]
     Active Substance: AMOXICILLIN\CLAVULANATE POTASSIUM
     Dosage: 1.2 G, TWICE A DAY
     Route: 042
  12. RINIFOL [Concomitant]
     Dosage: UNK UNK, QD
     Route: 065

REACTIONS (6)
  - Dysphagia [Unknown]
  - Myalgia [Unknown]
  - Blood creatine increased [Unknown]
  - Aplastic anaemia [Fatal]
  - Blood calcium decreased [Unknown]
  - Arthralgia [Unknown]

NARRATIVE: CASE EVENT DATE: 20140610
